FAERS Safety Report 8555526-6 (Version None)
Quarter: 2012Q3

REPORT INFORMATION
  Report Type: 
  Country: None (occurrence: None)
  Receive Date: 20120731
  Receipt Date: 20110727
  Transmission Date: 20120928
  Serious: Yes (Hospitalization, Other)
  Sender: FDA-Public Use
  Company Number: US-ASTRAZENECA-2010SE04124

PATIENT
  Age: 25 Year
  Sex: Male

DRUGS (2)
  1. SEROQUEL [Suspect]
     Route: 048
     Dates: start: 20060101
  2. FENTORA [Concomitant]

REACTIONS (3)
  - IMPAIRED WORK ABILITY [None]
  - PANCREATITIS CHRONIC [None]
  - MOBILITY DECREASED [None]
